FAERS Safety Report 13336392 (Version 1)
Quarter: 2017Q1

REPORT INFORMATION
  Report Type: Spontaneous
  Country: US (occurrence: US)
  Receive Date: 20170314
  Receipt Date: 20170314
  Transmission Date: 20170428
  Serious: No
  Sender: FDA-Public Use
  Company Number: US-JAZZ-2016-US-022976

PATIENT
  Sex: Male

DRUGS (15)
  1. ADVAIR HFA [Concomitant]
     Active Substance: FLUTICASONE PROPIONATE\SALMETEROL XINAFOATE
  2. PEPCID AC [Concomitant]
     Active Substance: FAMOTIDINE
  3. CRESTOR [Concomitant]
     Active Substance: ROSUVASTATIN CALCIUM
  4. XYREM [Suspect]
     Active Substance: SODIUM OXYBATE
     Indication: NARCOLEPSY
     Dosage: 2.25G, BID
     Route: 048
     Dates: start: 201608
  5. EFFEXOR [Concomitant]
     Active Substance: VENLAFAXINE HYDROCHLORIDE
  6. PROAIR HFA [Concomitant]
     Active Substance: ALBUTEROL SULFATE
  7. CLONAZEPAM. [Concomitant]
     Active Substance: CLONAZEPAM
  8. ZOLOFT [Concomitant]
     Active Substance: SERTRALINE HYDROCHLORIDE
  9. ABILIFY [Concomitant]
     Active Substance: ARIPIPRAZOLE
  10. PROPRANOLOL [Concomitant]
     Active Substance: PROPRANOLOL HYDROCHLORIDE
  11. LAMICTAL [Concomitant]
     Active Substance: LAMOTRIGINE
  12. LITHIUM CARBONATE. [Concomitant]
     Active Substance: LITHIUM CARBONATE
  13. MELATONIN [Concomitant]
     Active Substance: MELATONIN
  14. PROZAC [Concomitant]
     Active Substance: FLUOXETINE HYDROCHLORIDE
  15. ZYRTEC [Concomitant]
     Active Substance: CETIRIZINE HYDROCHLORIDE

REACTIONS (1)
  - Accidental exposure to product [Unknown]
